FAERS Safety Report 19478264 (Version 2)
Quarter: 2021Q3

REPORT INFORMATION
  Report Type: Spontaneous
  Country: US (occurrence: US)
  Receive Date: 20210630
  Receipt Date: 20210922
  Transmission Date: 20211014
  Serious: No
  Sender: FDA-Public Use
  Company Number: US-SA-2021SA212968

PATIENT
  Age: 56 Year
  Sex: Female

DRUGS (1)
  1. DUPIXENT [Suspect]
     Active Substance: DUPILUMAB
     Dosage: 300 MG, QOW
     Route: 058

REACTIONS (5)
  - Injection site urticaria [Unknown]
  - Condition aggravated [Unknown]
  - Drug dose omission by device [Unknown]
  - Needle issue [Unknown]
  - Rash [Unknown]

NARRATIVE: CASE EVENT DATE: 202106
